FAERS Safety Report 15967719 (Version 1)
Quarter: 2019Q1

REPORT INFORMATION
  Report Type: Spontaneous
  Country: US (occurrence: US)
  Receive Date: 20190124
  Receipt Date: 20190124
  Transmission Date: 20190418
  Serious: No
  Sender: FDA-Public Use
  Company Number: None

PATIENT
  Age: 76 Year
  Sex: Female
  Weight: 63.5 kg

DRUGS (10)
  1. PRIMIDONE 50MG TABLET [Suspect]
     Active Substance: PRIMIDONE
     Indication: TREMOR
     Dosage: ?          QUANTITY:50 MG MILLIGRAM(S);?
     Route: 048
     Dates: start: 20181225, end: 20181228
  2. PRIMIDONE 50MG TABLET [Suspect]
     Active Substance: PRIMIDONE
     Indication: TORTICOLLIS
     Dosage: ?          QUANTITY:50 MG MILLIGRAM(S);?
     Route: 048
     Dates: start: 20181225, end: 20181228
  3. KLONOPIN [Concomitant]
     Active Substance: CLONAZEPAM
  4. MVI [Concomitant]
     Active Substance: VITAMINS
  5. SIMILASON STYE EYE RELIEF [Concomitant]
  6. BOTOX [Concomitant]
     Active Substance: ONABOTULINUMTOXINA
  7. SYMBICORT [Concomitant]
     Active Substance: BUDESONIDE\FORMOTEROL FUMARATE DIHYDRATE
  8. L-THYROXIN [Concomitant]
     Active Substance: LEVOTHYROXINE SODIUM
  9. TYLENOL EXT ST [Concomitant]
  10. CELEXA [Concomitant]
     Active Substance: CITALOPRAM HYDROBROMIDE

REACTIONS (1)
  - Blood pressure increased [None]

NARRATIVE: CASE EVENT DATE: 20181227
